FAERS Safety Report 6176775-0 (Version None)
Quarter: 2009Q2

REPORT INFORMATION
  Report Type: 
  Country: None (occurrence: None)
  Receive Date: 20090501
  Receipt Date: 20090422
  Transmission Date: 20091009
  Serious: Yes (Hospitalization)
  Sender: FDA-Public Use
  Company Number: ES-ELI_LILLY_AND_COMPANY-ES200904005550

PATIENT
  Age: 90 Year
  Sex: Female

DRUGS (2)
  1. FORTEO [Suspect]
     Indication: OSTEOPOROSIS
     Dosage: 20 UG, UNKNOWN
     Route: 058
     Dates: start: 20090301, end: 20090420
  2. HYPNOTICS AND SEDATIVES [Concomitant]

REACTIONS (3)
  - APHASIA [None]
  - EMBOLISM [None]
  - URINARY TRACT INFECTION [None]
